FAERS Safety Report 6872989-2 (Version None)
Quarter: 2010Q3

REPORT INFORMATION
  Report Type: 
  Country: None (occurrence: None)
  Receive Date: 20100723
  Receipt Date: 20081120
  Transmission Date: 20110219
  Serious: No
  Sender: FDA-Public Use
  Company Number: US-PFIZER INC-2008098715

PATIENT
  Sex: Female
  Weight: 62.7 kg

DRUGS (4)
  1. CHANTIX [Suspect]
     Indication: SMOKING CESSATION THERAPY
     Dates: start: 20080101, end: 20080101
  2. ANALGESICS [Concomitant]
  3. LASIX [Concomitant]
  4. VYTORIN [Concomitant]

REACTIONS (1)
  - VOMITING [None]
